FAERS Safety Report 14634809 (Version 4)
Quarter: 2018Q2

REPORT INFORMATION
  Report Type: Spontaneous
  Country: US (occurrence: US)
  Receive Date: 20180314
  Receipt Date: 20180422
  Transmission Date: 20180711
  Serious: Yes (Other)
  Sender: FDA-Public Use
  Company Number: US-APOTEX-2018AP007707

PATIENT

DRUGS (1)
  1. PRAVASTATIN. [Suspect]
     Active Substance: PRAVASTATIN
     Indication: ARTERIAL OCCLUSIVE DISEASE
     Dosage: 40 MG, QD
     Route: 048
     Dates: start: 201511, end: 201802

REACTIONS (4)
  - Binocular eye movement disorder [Not Recovered/Not Resolved]
  - Diplopia [Not Recovered/Not Resolved]
  - Extraocular muscle paresis [Not Recovered/Not Resolved]
  - Visual impairment [Not Recovered/Not Resolved]
